FAERS Safety Report 20003882 (Version 1)
Quarter: 2021Q4

REPORT INFORMATION
  Report Type: Spontaneous
  Country: FR (occurrence: FR)
  Receive Date: 20211027
  Receipt Date: 20211027
  Transmission Date: 20220303
  Serious: Yes (Hospitalization)
  Sender: FDA-Public Use
  Company Number: None

PATIENT
  Age: 63 Year
  Sex: Male
  Weight: 70 kg

DRUGS (9)
  1. AMOXICILLIN [Suspect]
     Active Substance: AMOXICILLIN
     Indication: Pneumonia aspiration
     Dosage: UNK
     Dates: start: 20210531, end: 20210602
  2. METRONIDAZOLE [Suspect]
     Active Substance: METRONIDAZOLE
     Indication: Pneumonia aspiration
     Dosage: UNK
     Dates: start: 20210602, end: 20210608
  3. AMIKACIN [Suspect]
     Active Substance: AMIKACIN
     Indication: Pneumonia aspiration
     Dosage: UNK
     Dates: start: 20210602, end: 20210608
  4. IOBITRIDOL [Suspect]
     Active Substance: IOBITRIDOL
     Indication: Product used for unknown indication
     Dosage: 100 MILLILITER
     Route: 042
     Dates: start: 20210608, end: 20210608
  5. IOBITRIDOL [Suspect]
     Active Substance: IOBITRIDOL
     Dosage: 110 MILLILITER
     Route: 042
     Dates: start: 20210531, end: 20210531
  6. CLAVULANIC ACID [Suspect]
     Active Substance: CLAVULANIC ACID
     Indication: Pneumonia aspiration
     Dosage: UNK
     Dates: start: 20210531, end: 20210602
  7. CEFOTAXIME [Suspect]
     Active Substance: CEFOTAXIME SODIUM
     Indication: Pneumonia aspiration
     Dosage: UNK
     Dates: start: 20210602, end: 20210608
  8. MIDAZOLAM [Concomitant]
     Active Substance: MIDAZOLAM
     Indication: Sedation
     Dosage: UNK
     Dates: start: 20210529, end: 20210615
  9. SUFENTANIL [Concomitant]
     Active Substance: SUFENTANIL
     Indication: Sedation
     Dosage: UNK
     Dates: start: 20210529, end: 20210616

REACTIONS (1)
  - Dermatitis bullous [Recovered/Resolved]

NARRATIVE: CASE EVENT DATE: 20210605
